FAERS Safety Report 17425596 (Version 2)
Quarter: 2020Q1

REPORT INFORMATION
  Report Type: Report from Study
  Country: JP (occurrence: JP)
  Receive Date: 20200217
  Receipt Date: 20200225
  Transmission Date: 20200409
  Serious: Yes (Hospitalization)
  Sender: FDA-Public Use
  Company Number: JP-ASTELLAS-2019JP025789

PATIENT
  Age: 73 Year
  Sex: Male
  Weight: 58 kg

DRUGS (12)
  1. LIVALO [Concomitant]
     Active Substance: PITAVASTATIN CALCIUM
     Indication: DYSLIPIDAEMIA
     Route: 048
     Dates: start: 201807
  2. BAYASPIRIN [Concomitant]
     Active Substance: ASPIRIN
     Indication: MYOCARDIAL INFARCTION
     Route: 048
     Dates: start: 201807
  3. ASG-22CE [Suspect]
     Active Substance: ENFORTUMAB VEDOTIN
     Dosage: 1 MG/KG/DAY, UNKNOWN FREQ.
     Route: 042
  4. LIXIANA [Concomitant]
     Active Substance: EDOXABAN TOSYLATE
     Indication: VENOUS THROMBOSIS LIMB
     Route: 048
     Dates: start: 201808
  5. ENEVO [Concomitant]
     Indication: PROPHYLAXIS
     Route: 048
     Dates: start: 20191121
  6. ARTIST [Concomitant]
     Active Substance: CARVEDILOL
     Indication: HYPERTENSION
     Route: 048
     Dates: start: 201809
  7. CORTRIL [Concomitant]
     Active Substance: HYDROCORTISONE
     Route: 048
     Dates: start: 20191220
  8. ASG-22CE [Suspect]
     Active Substance: ENFORTUMAB VEDOTIN
     Indication: BLADDER CANCER
     Dosage: 1.25 MG/KG/DAY, UNKNOWN FREQ.
     Route: 042
     Dates: start: 20191108
  9. CORTRIL [Concomitant]
     Active Substance: HYDROCORTISONE
     Indication: HYPOPITUITARISM
     Route: 048
     Dates: start: 20190314
  10. PURSENNIDE [SENNOSIDE A+B CALCIUM] [Concomitant]
     Indication: CONSTIPATION
     Route: 048
     Dates: start: 20191117
  11. FEBURIC [Concomitant]
     Active Substance: FEBUXOSTAT
     Indication: PROPHYLAXIS
     Route: 048
     Dates: start: 201808
  12. ALMETA [Concomitant]
     Active Substance: ALCLOMETASONE DIPROPIONATE
     Indication: RASH MACULO-PAPULAR
     Dosage: RIGHT AMOUNT AT AS APPROPRIATELY
     Route: 061
     Dates: start: 20191119

REACTIONS (3)
  - Pneumonia [Recovering/Resolving]
  - Decreased appetite [Recovered/Resolved]
  - Pyrexia [Recovered/Resolved]

NARRATIVE: CASE EVENT DATE: 20191113
